FAERS Safety Report 4381916-1 (Version None)
Quarter: 2004Q2

REPORT INFORMATION
  Report Type: 
  Country: None (occurrence: None)
  Receive Date: 20040615
  Receipt Date: 20040603
  Transmission Date: 20050107
  Serious: Yes (Hospitalization)
  Sender: FDA-Public Use
  Company Number: 6009103F

PATIENT
  Age: 61 Year
  Sex: Female

DRUGS (2)
  1. NIASPAN [Suspect]
     Indication: DYSLIPIDAEMIA
     Dosage: 375 MG QD PO
     Route: 048
     Dates: start: 20040511
  2. ATORVASTATIN CALCIUM [Concomitant]

REACTIONS (2)
  - ANGINA UNSTABLE [None]
  - HYPERTENSION [None]
